FAERS Safety Report 12119697 (Version 4)
Quarter: 2016Q1

REPORT INFORMATION
  Report Type: Spontaneous
  Country: US (occurrence: US)
  Receive Date: 20160226
  Receipt Date: 20160321
  Transmission Date: 20160526
  Serious: Yes (Death, Hospitalization, Other)
  Sender: FDA-Public Use
  Company Number: US-ACORDA-ACO_120786_2016

PATIENT
  Age: 49 Year
  Sex: Female
  Weight: 53.61 kg

DRUGS (2)
  1. AMPYRA [Suspect]
     Active Substance: DALFAMPRIDINE
     Indication: GAIT DISTURBANCE
     Dosage: 10 MG, Q 12 HRS
     Route: 048
     Dates: start: 20150701, end: 20160111
  2. AMPYRA [Suspect]
     Active Substance: DALFAMPRIDINE
     Indication: MULTIPLE SCLEROSIS

REACTIONS (6)
  - Therapy cessation [Not Recovered/Not Resolved]
  - Kidney infection [Unknown]
  - Nephrolithiasis [Unknown]
  - Renal disorder [Unknown]
  - Bedridden [Unknown]
  - Renal failure [Fatal]

NARRATIVE: CASE EVENT DATE: 20151219
